FAERS Safety Report 19592064 (Version 1)
Quarter: 2021Q3

REPORT INFORMATION
  Report Type: Spontaneous
  Country: US (occurrence: US)
  Receive Date: 20210722
  Receipt Date: 20210722
  Transmission Date: 20211014
  Serious: No
  Sender: FDA-Public Use
  Company Number: US-CADILA HEALTHCARE LIMITED-US-ZYDUS-057518

PATIENT
  Sex: Female

DRUGS (1)
  1. AMANTADINE 100 MILLIGRAM CAPSULE [Suspect]
     Active Substance: AMANTADINE
     Indication: VIRAL INFECTION
     Dosage: 100 MILLIGRAM, QD
     Route: 048
     Dates: start: 202001, end: 20201007

REACTIONS (3)
  - Muscular weakness [Not Recovered/Not Resolved]
  - Hypoaesthesia [Recovered/Resolved]
  - Neuralgia [Recovered/Resolved]

NARRATIVE: CASE EVENT DATE: 2020
